FAERS Safety Report 15630929 (Version 4)
Quarter: 2019Q1

REPORT INFORMATION
  Report Type: Report from Study
  Country: US (occurrence: US)
  Receive Date: 20181119
  Receipt Date: 20190103
  Transmission Date: 20190417
  Serious: Yes (Hospitalization, Other)
  Sender: FDA-Public Use
  Company Number: US-GILEAD-2018-0374622

PATIENT
  Age: 62 Year
  Sex: Female
  Weight: 56.7 kg

DRUGS (12)
  1. AMBRISENTAN [Suspect]
     Active Substance: AMBRISENTAN
     Indication: PULMONARY HYPERTENSION
     Dosage: 10 MG, QD
     Route: 065
     Dates: start: 20180817
  2. AMBRISENTAN [Suspect]
     Active Substance: AMBRISENTAN
     Indication: HEART DISEASE CONGENITAL
  3. ADCIRCA [Concomitant]
     Active Substance: TADALAFIL
  4. TADALAFIL. [Concomitant]
     Active Substance: TADALAFIL
  5. DIGOXIN. [Concomitant]
     Active Substance: DIGOXIN
  6. MARINOL [ALLOPURINOL] [Concomitant]
  7. REMODULIN [Concomitant]
     Active Substance: TREPROSTINIL
  8. NORCO [Concomitant]
     Active Substance: ACETAMINOPHEN\HYDROCODONE BITARTRATE
  9. COUMADIN [Concomitant]
     Active Substance: WARFARIN SODIUM
  10. LASIX [Concomitant]
     Active Substance: FUROSEMIDE
  11. ASA [Concomitant]
     Active Substance: ASPIRIN
  12. AMIODARONE [Concomitant]
     Active Substance: AMIODARONE

REACTIONS (7)
  - Catheter site cellulitis [Recovered/Resolved]
  - Fatigue [Unknown]
  - Dizziness [Unknown]
  - Abdominal pain [Unknown]
  - Dyspnoea [Unknown]
  - Acute respiratory failure [Unknown]
  - Oxygen saturation decreased [Unknown]

NARRATIVE: CASE EVENT DATE: 20181113
